FAERS Safety Report 20113519 (Version 1)
Quarter: 2021Q4

REPORT INFORMATION
  Report Type: Spontaneous
  Country: US (occurrence: US)
  Receive Date: 20211125
  Receipt Date: 20211125
  Transmission Date: 20220303
  Serious: Yes (Other)
  Sender: FDA-Public Use
  Company Number: US-GLAXOSMITHKLINE-US2021GSK243074

PATIENT
  Sex: Male

DRUGS (8)
  1. ZANTAC [Suspect]
     Active Substance: RANITIDINE HYDROCHLORIDE
     Indication: Gastritis
     Dosage: 75 MG BOTH
     Route: 065
     Dates: start: 199101, end: 200501
  2. ZANTAC [Suspect]
     Active Substance: RANITIDINE HYDROCHLORIDE
     Dosage: 150 MG, QD
     Route: 065
     Dates: start: 199101, end: 200501
  3. ZANTAC [Suspect]
     Active Substance: RANITIDINE HYDROCHLORIDE
     Indication: Gastritis
     Dosage: 75 MG BOTH
     Route: 065
     Dates: start: 199101, end: 200501
  4. ZANTAC [Suspect]
     Active Substance: RANITIDINE HYDROCHLORIDE
     Dosage: 150 MG, QD
     Route: 065
     Dates: start: 199101, end: 200501
  5. ZANTAC [Suspect]
     Active Substance: RANITIDINE HYDROCHLORIDE
     Indication: Gastritis
     Dosage: 75 MG BOTH
     Route: 065
     Dates: start: 199101, end: 200501
  6. ZANTAC [Suspect]
     Active Substance: RANITIDINE HYDROCHLORIDE
     Dosage: 150 MG, QD
     Route: 065
     Dates: start: 199101, end: 200501
  7. RANITIDINE [Suspect]
     Active Substance: RANITIDINE
     Indication: Gastritis
     Dosage: 75 MG BOTH
     Route: 065
     Dates: start: 199101, end: 200501
  8. RANITIDINE [Suspect]
     Active Substance: RANITIDINE
     Dosage: 150 MG, QD
     Route: 065
     Dates: start: 199101, end: 200501

REACTIONS (1)
  - Prostate cancer [Unknown]
